FAERS Safety Report 5043698-X (Version None)
Quarter: 2006Q2

REPORT INFORMATION
  Report Type: 
  Country: None (occurrence: None)
  Receive Date: 20060628
  Receipt Date: 20060615
  Transmission Date: 20061013
  Serious: Yes (Hospitalization)
  Sender: FDA-Public Use
  Company Number: CERZ-11248

PATIENT
  Age: 49 Year
  Sex: Female
  Weight: 56 kg

DRUGS (1)
  1. CEREZYME [Suspect]
     Indication: GAUCHER'S DISEASE
     Dosage: 3600 UNITS Q2WKS IV
     Route: 042

REACTIONS (2)
  - DRUG DOSE OMISSION [None]
  - HIP ARTHROPLASTY [None]
